FAERS Safety Report 8297587-8 (Version None)
Quarter: 2012Q2

REPORT INFORMATION
  Report Type: 
  Country: None (occurrence: None)
  Receive Date: 20120419
  Receipt Date: 20120410
  Transmission Date: 20120825
  Serious: Yes (Hospitalization, Other)
  Sender: FDA-Public Use
  Company Number: PHHY2011KR105554

PATIENT
  Sex: Male
  Weight: 53 kg

DRUGS (2)
  1. EXJADE [Suspect]
     Indication: IRON OVERLOAD
     Dosage: 1000 MG, DAILY
     Route: 048
     Dates: start: 20081117
  2. EXJADE [Suspect]
     Indication: APLASTIC ANAEMIA

REACTIONS (8)
  - HYDRONEPHROSIS [None]
  - BLOOD IRON INCREASED [None]
  - URINARY TRACT INFLAMMATION [None]
  - LISTLESS [None]
  - HAEMOGLOBIN DECREASED [None]
  - CALCULUS URINARY [None]
  - DECREASED APPETITE [None]
  - INTESTINAL OBSTRUCTION [None]
